FAERS Safety Report 6331783-1 (Version None)
Quarter: 2009Q3

REPORT INFORMATION
  Report Type: 
  Country: None (occurrence: None)
  Receive Date: 20090826
  Receipt Date: 20090817
  Transmission Date: 20100115
  Serious: Yes (Hospitalization, Other)
  Sender: FDA-Public Use
  Company Number: 2009EU002227

PATIENT
  Age: 15 Year
  Sex: Female
  Weight: 45 kg

DRUGS (2)
  1. TACROLIMUS [Suspect]
     Indication: DERMATITIS ATOPIC
     Dosage: 0.04%, PRN, TOPICAL
     Route: 061
     Dates: start: 20050228, end: 20080601
  2. GLEEVEC [Concomitant]

REACTIONS (1)
  - CHRONIC MYELOID LEUKAEMIA [None]
